FAERS Safety Report 5565621-1 (Version None)
Quarter: 2007Q4

REPORT INFORMATION
  Report Type: 
  Country: None (occurrence: None)
  Receive Date: 20071218
  Receipt Date: 20070308
  Transmission Date: 20080405
  Serious: No
  Sender: FDA-Public Use
  Company Number: US-BOEHRINGER INGELHEIM PHARMACEUTICALS, INC.-2007-BP-01137BP

PATIENT
  Age: 70 Year
  Sex: Female

DRUGS (5)
  1. SPIRIVA [Suspect]
     Indication: CHRONIC OBSTRUCTIVE PULMONARY DISEASE
     Route: 055
     Dates: start: 20061201
  2. SPIRIVA [Suspect]
     Indication: EMPHYSEMA
  3. AVALIDE [Concomitant]
  4. CLIMARA [Concomitant]
  5. XOPENEX [Concomitant]

REACTIONS (3)
  - GLAUCOMA [None]
  - OCULAR HYPERAEMIA [None]
  - VISION BLURRED [None]
